FAERS Safety Report 5613857-3 (Version None)
Quarter: 2008Q1

REPORT INFORMATION
  Report Type: 
  Country: None (occurrence: None)
  Receive Date: 20080205
  Receipt Date: 20080128
  Transmission Date: 20080703
  Serious: Yes (Hospitalization, Other)
  Sender: FDA-Public Use
  Company Number: PHNR2005AU01284

PATIENT
  Age: 50 Year
  Sex: Male

DRUGS (6)
  1. CLOZARIL [Suspect]
     Indication: SCHIZOPHRENIA, PARANOID TYPE
     Dosage: UP TO 700 MG/DAY
     Route: 048
     Dates: start: 19950830
  2. CLOZARIL [Suspect]
     Dosage: 600 MG/D
     Route: 048
  3. CLOZARIL [Suspect]
     Dosage: 25-275 MG/D
     Route: 048
  4. CLOZARIL [Suspect]
     Dosage: 550 MG/DAY
     Route: 048
     Dates: start: 19950101
  5. PAROXETINE [Concomitant]
     Dosage: 20 MG, QD
  6. OLANZAPINE [Concomitant]
     Dosage: 500 MG, QD

REACTIONS (27)
  - ABNORMAL BEHAVIOUR [None]
  - AGGRESSION [None]
  - AGITATION [None]
  - BLOOD CREATINE PHOSPHOKINASE INCREASED [None]
  - BODY TEMPERATURE INCREASED [None]
  - ENDOTRACHEAL INTUBATION [None]
  - FALL [None]
  - FOAMING AT MOUTH [None]
  - HOMICIDAL IDEATION [None]
  - HYPERHIDROSIS [None]
  - HYPONATRAEMIA [None]
  - IRRITABILITY [None]
  - LOSS OF CONSCIOUSNESS [None]
  - MENTAL DISORDER [None]
  - MENTAL IMPAIRMENT [None]
  - NEGLECT OF PERSONAL APPEARANCE [None]
  - NEUROLEPTIC MALIGNANT SYNDROME [None]
  - NEUTROPHIL COUNT INCREASED [None]
  - PYREXIA [None]
  - RHABDOMYOLYSIS [None]
  - SEDATION [None]
  - SUICIDAL IDEATION [None]
  - TACHYCARDIA [None]
  - TREATMENT NONCOMPLIANCE [None]
  - UNRESPONSIVE TO STIMULI [None]
  - VOMITING [None]
  - WHITE BLOOD CELL COUNT INCREASED [None]
